FAERS Safety Report 9789833 (Version 1)
Quarter: 2013Q4

REPORT INFORMATION
  Report Type: Spontaneous
  Country: FR (occurrence: None)
  Receive Date: 20131227
  Receipt Date: 20131227
  Transmission Date: 20140711
  Serious: Yes (Life-Threatening)
  Sender: FDA-Public Use
  Company Number: 7257532

PATIENT
  Age: 72 Year
  Sex: Female

DRUGS (2)
  1. METFORMIN (METFORMIN) (METFORMIN) [Suspect]
     Indication: TYPE 2 DIABETES MELLITUS
     Route: 048
  2. LEVOTHYROX (LEVOTHYROXINE SODIUM) (25 MICROGRAM) [Suspect]
     Indication: HYPOTHYROIDISM
     Route: 048

REACTIONS (1)
  - Pancreatic carcinoma metastatic [None]
